FAERS Safety Report 5726651-X (Version None)
Quarter: 2008Q2

REPORT INFORMATION
  Report Type: 
  Country: None (occurrence: None)
  Receive Date: 20080502
  Receipt Date: 20080402
  Transmission Date: 20081010
  Serious: Yes (Hospitalization, Other)
  Sender: FDA-Public Use
  Company Number: FR-PFIZER INC-2008003965

PATIENT
  Sex: Male
  Weight: 70 kg

DRUGS (13)
  1. MARAVIROC [Suspect]
     Indication: HIV INFECTION
     Route: 048
  2. TIPRANAVIR [Concomitant]
     Indication: HIV INFECTION
     Route: 048
  3. RITONAVIR [Concomitant]
     Indication: HIV INFECTION
     Route: 048
  4. TRUVADA [Concomitant]
     Indication: HIV INFECTION
     Dosage: TEXT:1 TABLET; 1 TABLET-FREQ:QD: EVERY OTHER DAY
     Route: 048
  5. RALTEGRAVIR [Concomitant]
     Indication: HIV INFECTION
     Route: 048
  6. ZELITREX [Concomitant]
     Route: 048
  7. LYRICA [Concomitant]
     Route: 048
  8. UTEPLEX [Concomitant]
     Route: 048
  9. ANSATIPIN [Concomitant]
     Route: 048
  10. PIRILENE [Concomitant]
     Route: 048
  11. RIMIFON [Concomitant]
     Route: 048
  12. BACTRIM [Concomitant]
     Route: 048
  13. IBUPROFEN TABLETS [Concomitant]
     Route: 048
     Dates: start: 20071203, end: 20080108

REACTIONS (2)
  - HODGKIN'S DISEASE [None]
  - PYREXIA [None]
